FAERS Safety Report 8520311-8 (Version None)
Quarter: 2012Q3

REPORT INFORMATION
  Report Type: 
  Country: None (occurrence: None)
  Receive Date: 20120719
  Receipt Date: 20120706
  Transmission Date: 20120928
  Serious: No
  Sender: FDA-Public Use
  Company Number: US-009507513-1207USA001619

PATIENT

DRUGS (7)
  1. CELEXA [Concomitant]
  2. SINGULAIR [Suspect]
     Indication: ASTHMA
     Dosage: 10 MG, QD
     Route: 048
     Dates: start: 20020101, end: 20120628
  3. ZYRTEC [Concomitant]
  4. GLUCOPHAGE [Concomitant]
  5. GLYBURIDE [Concomitant]
  6. LANTUS [Concomitant]
  7. ZOCOR [Concomitant]

REACTIONS (2)
  - HEADACHE [None]
  - ARTHRALGIA [None]
